FAERS Safety Report 21027591 (Version 1)
Quarter: 2022Q2

REPORT INFORMATION
  Report Type: Spontaneous
  Country: US (occurrence: US)
  Receive Date: 20220630
  Receipt Date: 20220630
  Transmission Date: 20220720
  Serious: No
  Sender: FDA-Public Use
  Company Number: US-BEH-2022146943

PATIENT
  Sex: Female
  Weight: 50.794 kg

DRUGS (1)
  1. HIZENTRA [Suspect]
     Active Substance: HUMAN IMMUNOGLOBULIN G
     Indication: Immunodeficiency common variable
     Dosage: 30 GRAM, QW
     Route: 065
     Dates: start: 2015

REACTIONS (3)
  - Muscle spasms [Unknown]
  - Insomnia [Unknown]
  - Hyperhidrosis [Unknown]
